FAERS Safety Report 7292602-2 (Version None)
Quarter: 2011Q1

REPORT INFORMATION
  Report Type: 
  Country: None (occurrence: None)
  Receive Date: 20110215
  Receipt Date: 20110214
  Transmission Date: 20110831
  Serious: No
  Sender: FDA-Public Use
  Company Number: US-JNJFOC-20110106882

PATIENT
  Sex: Female
  Weight: 43.09 kg

DRUGS (5)
  1. FENTANYL-100 [Suspect]
     Indication: SCOLIOSIS
     Route: 062
  2. FENTANYL-100 [Suspect]
     Indication: ARTHRALGIA
     Route: 062
  3. FENTANYL-100 [Suspect]
     Indication: SCOLIOSIS
     Route: 062
  4. IMITREX [Concomitant]
     Indication: MIGRAINE
     Route: 048
  5. FENTANYL-100 [Suspect]
     Indication: ARTHRALGIA
     Route: 062

REACTIONS (4)
  - PRODUCT QUALITY ISSUE [None]
  - INAPPROPRIATE SCHEDULE OF DRUG ADMINISTRATION [None]
  - WRONG TECHNIQUE IN DRUG USAGE PROCESS [None]
  - ADVERSE EVENT [None]
